FAERS Safety Report 14803728 (Version 1)
Quarter: 2018Q2

REPORT INFORMATION
  Report Type: Spontaneous
  Country: US (occurrence: US)
  Receive Date: 20180425
  Receipt Date: 20180425
  Transmission Date: 20180711
  Serious: No
  Sender: FDA-Public Use
  Company Number: US-INSYS THERAPEUTICS, INC-INS201802-000055

PATIENT
  Sex: Male

DRUGS (2)
  1. SYNDROS [Suspect]
     Active Substance: DRONABINOL
     Indication: VOMITING
  2. SYNDROS [Suspect]
     Active Substance: DRONABINOL
     Indication: NAUSEA
     Route: 048

REACTIONS (1)
  - Sleep disorder [Unknown]
